FAERS Safety Report 22674099 (Version 2)
Quarter: 2024Q1

REPORT INFORMATION
  Report Type: Spontaneous
  Country: US (occurrence: US)
  Receive Date: 20230705
  Receipt Date: 20240226
  Transmission Date: 20240410
  Serious: No
  Sender: FDA-Public Use
  Company Number: US-SA-SAC20230705000345

PATIENT
  Age: 27 Year
  Sex: Female

DRUGS (1)
  1. DUPIXENT [Suspect]
     Active Substance: DUPILUMAB
     Indication: Nasal polyps
     Dosage: 300 MG, QOW
     Route: 058

REACTIONS (7)
  - Infection [Not Recovered/Not Resolved]
  - Fatigue [Unknown]
  - Nasal disorder [Unknown]
  - Condition aggravated [Unknown]
  - Gastritis [Unknown]
  - Insomnia [Unknown]
  - Injection site pain [Unknown]
